FAERS Safety Report 8902388 (Version 1)
Quarter: 2012Q4

REPORT INFORMATION
  Report Type: Report from Study
  Country: TW (occurrence: TW)
  Receive Date: 20121112
  Receipt Date: 20121112
  Transmission Date: 20130627
  Serious: Yes (Hospitalization)
  Sender: FDA-Public Use
  Company Number: TW-009507513-1209TWN010737

PATIENT
  Age: 53 Year
  Sex: Male
  Weight: 56.5 kg

DRUGS (13)
  1. ASENAPINE MALEATE [Suspect]
     Indication: SCHIZOPHRENIA
     Dosage: UNK
     Route: 060
     Dates: start: 20120717, end: 20120829
  2. BLINDED PLACEBO [Suspect]
     Indication: SCHIZOPHRENIA
     Dosage: UNK
     Route: 060
     Dates: start: 20120717, end: 20120829
  3. BLINDED POST TRIAL THERAPY [Suspect]
     Indication: SCHIZOPHRENIA
     Dosage: UNK
     Route: 060
     Dates: start: 20120717, end: 20120829
  4. BLINDED PRE TRIAL THERAPY [Suspect]
     Indication: SCHIZOPHRENIA
     Dosage: UNK
     Route: 060
     Dates: start: 20120717, end: 20120829
  5. GLIBUDON [Concomitant]
     Indication: DIABETES MELLITUS
     Dosage: 500 mg, tid
     Route: 048
     Dates: start: 20120705, end: 20121024
  6. AMARYL [Concomitant]
     Indication: DIABETES MELLITUS
     Dosage: 2-4 mg/day, bid
     Route: 048
     Dates: start: 20091210, end: 20121024
  7. ATEOL [Concomitant]
     Indication: HYPERTENSION
     Dosage: 100 mg, qd
     Route: 048
     Dates: start: 20091210, end: 20121024
  8. ATIVAN [Concomitant]
     Indication: INSOMNIA
     Dosage: 0.5-2 mg/day, hs
     Route: 048
     Dates: start: 20120715, end: 20121024
  9. EURODIN (ESTAZOLAM) [Concomitant]
     Indication: INSOMNIA
     Dosage: 2 mg, hs
     Route: 048
     Dates: start: 20120726, end: 20121024
  10. LODOPIN [Concomitant]
     Indication: SCHIZOPHRENIA
     Dosage: 150 mg, qd
     Route: 048
     Dates: start: 20120830, end: 20120913
  11. GEODON [Concomitant]
     Indication: SCHIZOPHRENIA
     Dosage: 80 mg, hs
     Route: 048
     Dates: start: 20120914, end: 20121024
  12. GEODON [Concomitant]
     Dosage: 40 mg, qd
     Route: 048
     Dates: start: 20120926, end: 20121024
  13. DEPAKINE [Concomitant]
     Indication: SCHIZOPHRENIA
     Dosage: 500 mg, hs
     Route: 048
     Dates: start: 20120914, end: 20121024

REACTIONS (1)
  - Schizophrenia [Recovered/Resolved]
